FAERS Safety Report 25782385 (Version 1)
Quarter: 2025Q3

REPORT INFORMATION
  Report Type: Report from Study
  Country: MX (occurrence: MX)
  Receive Date: 20250909
  Receipt Date: 20250909
  Transmission Date: 20251020
  Serious: Yes (Other)
  Sender: ABBVIE
  Company Number: MX-ABBOTT-2025A-1402228

PATIENT
  Age: 35 Year
  Sex: Female
  Weight: 62.3 kg

DRUGS (3)
  1. LIPIDIL [Suspect]
     Active Substance: FENOFIBRATE
     Indication: Hypertriglyceridaemia
     Dosage: 1 PILL EVERY 24 HOURS AT 10:00 PM, LIPIDIL 200 MG
     Route: 048
     Dates: start: 2019, end: 2022
  2. LIPIDIL [Suspect]
     Active Substance: FENOFIBRATE
     Indication: Hypertriglyceridaemia
     Dosage: 1 PILL EVERY 24 HOURS AT 10:00 PM, LIPIDIL 200 MG
     Route: 048
  3. SIMVASTATIN [Concomitant]
     Active Substance: SIMVASTATIN
     Indication: Product used for unknown indication

REACTIONS (4)
  - Cardiac failure [Unknown]
  - COVID-19 [Unknown]
  - Glucose tolerance impaired [Unknown]
  - Therapeutic product effect incomplete [Unknown]

NARRATIVE: CASE EVENT DATE: 20200101
